FAERS Safety Report 7374622-2 (Version None)
Quarter: 2011Q1

REPORT INFORMATION
  Report Type: 
  Country: None (occurrence: None)
  Receive Date: 20110325
  Receipt Date: 20100712
  Transmission Date: 20110831
  Serious: No
  Sender: FDA-Public Use
  Company Number: US-MYLANLABS-2010S1008565

PATIENT
  Age: 55 Year
  Sex: Female
  Weight: 86.18 kg

DRUGS (10)
  1. SYNTHROID [Concomitant]
  2. BACLOFEN [Concomitant]
  3. ESTRADIOL [Concomitant]
  4. ADVAIR DISKUS 100/50 [Concomitant]
  5. FENTANYL-100 [Suspect]
     Indication: PAIN
     Dosage: CHANGED Q72H
     Route: 062
  6. OXYCONTIN [Concomitant]
  7. ALPRAZOLAM [Concomitant]
  8. FENTANYL-100 [Suspect]
     Dosage: CHANGED Q72H
     Route: 062
  9. VISTARIL [Concomitant]
  10. CELEBREX [Concomitant]

REACTIONS (4)
  - HYPERHIDROSIS [None]
  - FALSE NEGATIVE INVESTIGATION RESULT [None]
  - WEIGHT INCREASED [None]
  - DISCOMFORT [None]
